FAERS Safety Report 16752651 (Version 1)
Quarter: 2019Q3

REPORT INFORMATION
  Report Type: Spontaneous
  Country: CA (occurrence: CA)
  Receive Date: 20190828
  Receipt Date: 20190828
  Transmission Date: 20191005
  Serious: Yes (Other)
  Sender: FDA-Public Use
  Company Number: CA-AMGEN-CANSP2019134594

PATIENT
  Sex: Female

DRUGS (4)
  1. METHOTREXATE. [Concomitant]
     Active Substance: METHOTREXATE
     Dosage: UNK
     Dates: start: 2016, end: 201810
  2. ENBREL [Suspect]
     Active Substance: ETANERCEPT
     Indication: PRODUCT USED FOR UNKNOWN INDICATION
     Dosage: UNK
     Route: 065
     Dates: start: 2016, end: 201810
  3. PLAQUENIL [Concomitant]
     Active Substance: HYDROXYCHLOROQUINE SULFATE
     Dosage: 400 MILLIGRAM, QD
     Dates: start: 201810
  4. PREDNISONE. [Concomitant]
     Active Substance: PREDNISONE
     Dosage: 5 TO 10 MILLIGRAM QD
     Dates: start: 201810

REACTIONS (3)
  - Tongue neoplasm malignant stage unspecified [Unknown]
  - Rheumatoid arthritis [Unknown]
  - Tongue ulceration [Unknown]
